FAERS Safety Report 5175341-3 (Version None)
Quarter: 2006Q4

REPORT INFORMATION
  Report Type: 
  Country: None (occurrence: None)
  Receive Date: 20061211
  Receipt Date: 20061211
  Transmission Date: 20070319
  Serious: Yes (Other)
  Sender: FDA-Public Use
  Company Number: None

PATIENT
  Age: 54 Year
  Sex: Female
  Weight: 49.8957 kg

DRUGS (1)
  1. SPORICIDIN DILUTED FOR FOGGER FOR 7656 SPORICIDIN [Suspect]
     Indication: FUNGAEMIA
     Dates: start: 20061026, end: 20061027

REACTIONS (2)
  - PHARMACEUTICAL PRODUCT COMPLAINT [None]
  - VOMITING [None]
